FAERS Safety Report 6752536-6 (Version None)
Quarter: 2010Q2

REPORT INFORMATION
  Report Type: 
  Country: None (occurrence: None)
  Receive Date: 20100528
  Receipt Date: 20100518
  Transmission Date: 20101027
  Serious: Yes (Death)
  Sender: FDA-Public Use
  Company Number: 593031

PATIENT
  Age: 60 Year
  Sex: Female

DRUGS (2)
  1. CARBOPLATIN [Suspect]
     Indication: ENDOMETRIAL CANCER RECURRENT
  2. PACLITAXEL [Suspect]
     Indication: ENDOMETRIAL CANCER RECURRENT

REACTIONS (12)
  - ABDOMINAL TENDERNESS [None]
  - ATELECTASIS [None]
  - BREATH SOUNDS ABNORMAL [None]
  - DIALYSIS [None]
  - DYSPNOEA [None]
  - FATIGUE [None]
  - HYPOTENSION [None]
  - LUNG CONSOLIDATION [None]
  - METABOLIC DISORDER [None]
  - SEPSIS [None]
  - TACHYCARDIA [None]
  - TUMOUR LYSIS SYNDROME [None]
